FAERS Safety Report 8016349-X (Version None)
Quarter: 2011Q4

REPORT INFORMATION
  Report Type: 
  Country: None (occurrence: None)
  Receive Date: 20111230
  Receipt Date: 20111222
  Transmission Date: 20120403
  Serious: Yes (Hospitalization, Other)
  Sender: FDA-Public Use
  Company Number: US-MERCK-1102USA01703

PATIENT
  Age: 63 Year
  Sex: Female
  Weight: 108 kg

DRUGS (6)
  1. COZAAR [Concomitant]
     Indication: HYPERTENSION
     Route: 048
     Dates: start: 20070401, end: 20091101
  2. LORATADINE [Concomitant]
     Indication: SEASONAL ALLERGY
     Route: 065
  3. FOSAMAX [Suspect]
     Indication: OSTEOPOROSIS
     Route: 048
     Dates: start: 20040101
  4. CLIMARA [Concomitant]
     Route: 065
     Dates: start: 20070401
  5. FOSAMAX [Suspect]
     Indication: OSTEOPOROSIS PROPHYLAXIS
     Route: 048
     Dates: start: 20040101
  6. LISINOPRIL [Concomitant]
     Route: 048
     Dates: start: 20040901, end: 20070301

REACTIONS (69)
  - CARPAL TUNNEL SYNDROME [None]
  - BLOOD CHOLESTEROL INCREASED [None]
  - OSTEOARTHRITIS [None]
  - ANGIOPATHY [None]
  - TYPE 2 DIABETES MELLITUS [None]
  - SKIN LESION [None]
  - ROTATOR CUFF SYNDROME [None]
  - PERIPHERAL VASCULAR DISORDER [None]
  - HYPERCHOLESTEROLAEMIA [None]
  - BASAL CELL CARCINOMA [None]
  - ELECTROLYTE IMBALANCE [None]
  - SYNCOPE [None]
  - BLOOD SODIUM DECREASED [None]
  - DYSPEPSIA [None]
  - VAGINAL DISCHARGE [None]
  - TENDONITIS [None]
  - SINUSITIS [None]
  - LIMB ASYMMETRY [None]
  - HYPOMAGNESAEMIA [None]
  - OEDEMA [None]
  - URINARY INCONTINENCE [None]
  - SWELLING [None]
  - SKIN DISORDER [None]
  - OSTEOPETROSIS [None]
  - OSTEOPENIA [None]
  - MENISCUS LESION [None]
  - ANAEMIA [None]
  - LIVER FUNCTION TEST ABNORMAL [None]
  - VENTRICULAR TACHYCARDIA [None]
  - BLOOD CORTISOL ABNORMAL [None]
  - JOINT EFFUSION [None]
  - HOT FLUSH [None]
  - IMPAIRED HEALING [None]
  - BONE METABOLISM DISORDER [None]
  - ATTENTION DEFICIT/HYPERACTIVITY DISORDER [None]
  - FEMUR FRACTURE [None]
  - RENAL FAILURE [None]
  - HYPOTENSION [None]
  - ANXIETY [None]
  - FLUID OVERLOAD [None]
  - DRUG HYPERSENSITIVITY [None]
  - DEPRESSION [None]
  - EYELID PTOSIS [None]
  - JOINT DISLOCATION [None]
  - INSOMNIA [None]
  - INFECTION [None]
  - SPINAL CLAUDICATION [None]
  - MYOCARDIAL INFARCTION [None]
  - METASTATIC NEOPLASM [None]
  - LUNG NEOPLASM MALIGNANT [None]
  - URINARY TRACT INFECTION [None]
  - BREAST DISORDER [None]
  - DIARRHOEA [None]
  - BURSITIS [None]
  - RECTAL FISSURE [None]
  - BLOOD POTASSIUM DECREASED [None]
  - BLOOD MAGNESIUM DECREASED [None]
  - ONYCHOMYCOSIS [None]
  - CONSTIPATION [None]
  - CATARACT [None]
  - HYPOKALAEMIA [None]
  - FALL [None]
  - ESCHERICHIA SEPSIS [None]
  - LUMBAR SPINAL STENOSIS [None]
  - VITAMIN SUPPLEMENTATION [None]
  - LOOSE BODY IN JOINT [None]
  - CAROTID ARTERY DISEASE [None]
  - RADICULITIS [None]
  - SYNOVIAL CYST [None]
